FAERS Safety Report 10143751 (Version 1)
Quarter: 2014Q2

REPORT INFORMATION
  Report Type: Spontaneous
  Country: AU (occurrence: AU)
  Receive Date: 20140430
  Receipt Date: 20140430
  Transmission Date: 20141212
  Serious: Yes (Other)
  Sender: FDA-Public Use
  Company Number: AU-WATSON-2014-08332

PATIENT
  Age: 76 Year
  Sex: Female
  Weight: 68 kg

DRUGS (9)
  1. MIRTAZAPINE (UNKNOWN) [Suspect]
     Indication: DEMENTIA ALZHEIMER^S TYPE
     Dosage: UNK
     Route: 065
  2. MIRTAZAPINE (UNKNOWN) [Suspect]
     Indication: DEPRESSION
  3. MIRTAZAPINE (UNKNOWN) [Suspect]
     Indication: PERSECUTORY DELUSION
  4. MIRTAZAPINE (UNKNOWN) [Suspect]
     Indication: SUICIDAL IDEATION
  5. MIRTAZAPINE (UNKNOWN) [Suspect]
     Indication: AGGRESSION
  6. SOTALOL [Concomitant]
     Indication: PRODUCT USED FOR UNKNOWN INDICATION
     Dosage: UNK
     Route: 065
  7. DIGOXIN [Concomitant]
     Indication: PRODUCT USED FOR UNKNOWN INDICATION
     Dosage: UNK
     Route: 065
  8. METHOTREXATE [Concomitant]
     Indication: PRODUCT USED FOR UNKNOWN INDICATION
     Dosage: UNK
     Route: 065
  9. PREDNISOLONE [Concomitant]
     Indication: PRODUCT USED FOR UNKNOWN INDICATION
     Dosage: UNK
     Route: 065

REACTIONS (1)
  - Dyslipidaemia [Recovered/Resolved]
